FAERS Safety Report 9413467 (Version 2)
Quarter: 2013Q4

REPORT INFORMATION
  Report Type: Spontaneous
  Country: US (occurrence: US)
  Receive Date: 20130722
  Receipt Date: 20131120
  Transmission Date: 20140711
  Serious: Yes (Other)
  Sender: FDA-Public Use
  Company Number: US-ELI_LILLY_AND_COMPANY-US201307004325

PATIENT
  Sex: Male
  Weight: 136.5 kg

DRUGS (5)
  1. HUMALOG LISPRO [Suspect]
     Indication: PRODUCT USED FOR UNKNOWN INDICATION
     Dosage: 8 DF, BID
     Route: 058
     Dates: start: 20110630
  2. LANTUS [Concomitant]
  3. SIMVASTATIN [Concomitant]
  4. LISINOPRIL [Concomitant]
  5. METFORMIN [Concomitant]

REACTIONS (1)
  - Blindness [Unknown]
